FAERS Safety Report 7629844-X (Version None)
Quarter: 2011Q3

REPORT INFORMATION
  Report Type: 
  Country: None (occurrence: None)
  Receive Date: 20110722
  Receipt Date: 20101206
  Transmission Date: 20111222
  Serious: No
  Sender: FDA-Public Use
  Company Number: US-BAYER-2011-039709

PATIENT
  Age: 41 Year
  Sex: Female

DRUGS (7)
  1. BETASERON [Suspect]
     Dosage: 0.25 MG, QOD
     Route: 058
  2. CHANTIX [Concomitant]
     Dosage: 1 MG, UNK
  3. ACETAMINOPHEN [Concomitant]
     Dosage: 500 MG, UNK
  4. IBUPROFEN [Concomitant]
     Dosage: 200 MG, UNK
  5. BACTRIM [Concomitant]
     Dosage: 400-800 MG
  6. HYDROCHLOROTHIAZID [Concomitant]
     Dosage: 25 MG, UNK
  7. BENTYL [Concomitant]
     Dosage: 10 MG, UNK

REACTIONS (1)
  - INJECTION SITE ERYTHEMA [None]
